FAERS Safety Report 14923410 (Version 2)
Quarter: 2018Q2

REPORT INFORMATION
  Report Type: Spontaneous
  Country: US (occurrence: US)
  Receive Date: 20180522
  Receipt Date: 20180611
  Transmission Date: 20180711
  Serious: Yes (Other)
  Sender: FDA-Public Use
  Company Number: US-BAYER-2018-096422

PATIENT
  Age: 28 Year
  Sex: Female

DRUGS (1)
  1. SKYLA [Suspect]
     Active Substance: LEVONORGESTREL
     Dosage: 14 MCG/24HR, CONT
     Route: 015
     Dates: start: 20180508, end: 20180508

REACTIONS (4)
  - Device deployment issue [None]
  - Complication of device insertion [None]
  - Device breakage [None]
  - Procedural pain [None]

NARRATIVE: CASE EVENT DATE: 20180508
